FAERS Safety Report 9162817 (Version 2)
Quarter: 2013Q1

REPORT INFORMATION
  Report Type: Spontaneous
  Country: IT (occurrence: IT)
  Receive Date: 20130314
  Receipt Date: 20130315
  Transmission Date: 20140127
  Serious: Yes (Hospitalization)
  Sender: FDA-Public Use
  Company Number: IT-SANOFI-AVENTIS-2013SA021776

PATIENT
  Age: 64 Year
  Sex: Male

DRUGS (15)
  1. ENALAPRIL MALEATE [Suspect]
     Indication: PRODUCT USED FOR UNKNOWN INDICATION
     Route: 048
     Dates: start: 20130109, end: 20130116
  2. LASIX [Interacting]
     Indication: PRODUCT USED FOR UNKNOWN INDICATION
     Route: 048
     Dates: start: 20050101
  3. ZAROXOLYN [Interacting]
     Indication: PRODUCT USED FOR UNKNOWN INDICATION
     Dosage: STRENGTH: 5 MG
     Route: 048
     Dates: start: 20130109, end: 20130116
  4. LANOXIN [Interacting]
     Indication: PRODUCT USED FOR UNKNOWN INDICATION
     Dosage: STRENGTH: 0.125 MG
     Route: 048
     Dates: start: 20130109, end: 20130116
  5. OMEGA-6 FATTY ACIDS [Concomitant]
  6. TIOTROPIUM BROMIDE [Concomitant]
  7. BISOPROLOL HEMIFUMARATE [Concomitant]
     Route: 048
  8. POTASSIUM CANRENOATE [Concomitant]
  9. GLYCERYL TRINITRATE [Concomitant]
  10. ATORVASTATIN CALCIUM [Concomitant]
     Route: 048
  11. XANAX [Concomitant]
     Dosage: STRENGTH: 0.75 MG/ML
  12. KEPPRA [Concomitant]
     Dosage: STRENGTH: 1000 MG
  13. COUMADIN [Concomitant]
     Dosage: STRENGTH: 5 MG
  14. KCL-RETARD [Concomitant]
     Indication: HYPOKALAEMIA
     Dosage: STRENGTH: 600 MG
     Route: 048
     Dates: start: 20121108, end: 20130116
  15. CARDIOASPIRIN [Concomitant]
     Dosage: STRENGTH: 100 MG

REACTIONS (8)
  - Dyspnoea [Recovered/Resolved]
  - Drug interaction [Unknown]
  - Hyponatraemia [Recovered/Resolved]
  - Dehydration [Recovered/Resolved]
  - Haemoconcentration [Recovered/Resolved]
  - Toxicity to various agents [Recovered/Resolved]
  - Volume blood decreased [Recovered/Resolved]
  - Hypotension [Recovered/Resolved]
